FAERS Safety Report 17339360 (Version 2)
Quarter: 2020Q1

REPORT INFORMATION
  Report Type: Spontaneous
  Country: US (occurrence: US)
  Receive Date: 20200129
  Receipt Date: 20200306
  Transmission Date: 20200409
  Serious: No
  Sender: FDA-Public Use
  Company Number: US-PFIZER INC-2020038114

PATIENT
  Age: 31 Year
  Sex: Female

DRUGS (4)
  1. SOMAVERT [Suspect]
     Active Substance: PEGVISOMANT
     Indication: ACROMEGALY
     Dosage: 30 MG, ALTERNATE DAY
     Route: 030
     Dates: end: 201912
  2. SOMAVERT [Suspect]
     Active Substance: PEGVISOMANT
     Indication: GIGANTISM
  3. SOMATULINE DEPOT [Suspect]
     Active Substance: LANREOTIDE ACETATE
     Dosage: UNK
  4. SOMAVERT [Suspect]
     Active Substance: PEGVISOMANT
     Indication: HYPOTHALAMO-PITUITARY DISORDER

REACTIONS (6)
  - Abdominal pain upper [Recovered/Resolved]
  - Irritable bowel syndrome [Recovered/Resolved]
  - Off label use [Unknown]
  - Incorrect route of product administration [Unknown]
  - Product use issue [Unknown]
  - Gastrointestinal pain [Recovered/Resolved]
